FAERS Safety Report 10194408 (Version 1)
Quarter: 2014Q2

REPORT INFORMATION
  Report Type: Spontaneous
  Country: US (occurrence: US)
  Receive Date: 20140526
  Receipt Date: 20140526
  Transmission Date: 20141212
  Serious: No
  Sender: FDA-Public Use
  Company Number: US-BIOGENIDEC-2014BI047551

PATIENT
  Age: 37 Year
  Sex: Female

DRUGS (1)
  1. AVONEX [Suspect]
     Indication: MULTIPLE SCLEROSIS
     Route: 030
     Dates: start: 20140207

REACTIONS (5)
  - Tetany [Recovered/Resolved]
  - Sluggishness [Recovered/Resolved]
  - Chills [Recovered/Resolved]
  - Head discomfort [Recovered/Resolved]
  - Hyperhidrosis [Recovered/Resolved]
